FAERS Safety Report 4437232-2 (Version None)
Quarter: 2004Q3

REPORT INFORMATION
  Report Type: 
  Country: None (occurrence: None)
  Receive Date: 20040726
  Receipt Date: 20040525
  Transmission Date: 20050211
  Serious: No
  Sender: FDA-Public Use
  Company Number: USA040360802

PATIENT
  Age: 71 Year
  Sex: Male
  Weight: 59 kg

DRUGS (1)
  1. FORTEO [Suspect]
     Indication: OSTEOPOROSIS
     Dosage: 20 UG DAY
     Dates: start: 20040226

REACTIONS (8)
  - ANXIETY [None]
  - DECREASED APPETITE [None]
  - INJECTION SITE PAIN [None]
  - MUSCLE CRAMP [None]
  - MUSCLE FATIGUE [None]
  - MUSCLE STRAIN [None]
  - NAUSEA [None]
  - PAIN IN EXTREMITY [None]
